FAERS Safety Report 7543813-X (Version None)
Quarter: 2011Q2

REPORT INFORMATION
  Report Type: 
  Country: None (occurrence: None)
  Receive Date: 20110613
  Receipt Date: 20110602
  Transmission Date: 20111010
  Serious: Yes (Hospitalization)
  Sender: FDA-Public Use
  Company Number: US-ASTRAZENECA-2011SE34039

PATIENT
  Sex: Female

DRUGS (14)
  1. PREVACID [Concomitant]
  2. VITAMINS D [Concomitant]
  3. MYASET [Concomitant]
  4. SINEMET [Concomitant]
     Indication: PARKINSON'S DISEASE
  5. VITAMINS  B-12 [Concomitant]
  6. NORVASC [Concomitant]
     Indication: CARDIAC DISORDER
  7. THYROID MED [Concomitant]
     Indication: THYROID DISORDER
  8. SEROQUEL XR [Suspect]
     Indication: HEAD INJURY
     Route: 048
     Dates: start: 20000101
  9. TOPROL-XL [Concomitant]
     Indication: CARDIAC DISORDER
  10. SIMVASTATIN [Concomitant]
     Indication: BLOOD CHOLESTEROL ABNORMAL
  11. ARICEPT [Concomitant]
  12. CYMBALTA [Concomitant]
     Indication: DEPRESSION
  13. ASPIRIN [Concomitant]
  14. M.V.I. [Concomitant]

REACTIONS (2)
  - KIDNEY INFECTION [None]
  - PULMONARY THROMBOSIS [None]
